FAERS Safety Report 5091095-3 (Version None)
Quarter: 2006Q3

REPORT INFORMATION
  Report Type: 
  Country: None (occurrence: None)
  Receive Date: 20060726
  Receipt Date: 20050609
  Transmission Date: 20061208
  Serious: Yes (Hospitalization)
  Sender: FDA-Public Use
  Company Number: USA-2005-0020556

PATIENT
  Age: 45 Year
  Sex: Female

DRUGS (10)
  1. MORPHINE SULFATE [Suspect]
     Indication: DRUG USE FOR UNKNOWN INDICATION
     Dosage: 15, BID
  2. CLOZAPINE [Suspect]
     Indication: DRUG USE FOR UNKNOWN INDICATION
     Dosage: ORAL
     Route: 048
     Dates: start: 20050201, end: 20050201
  3. ARTANE [Suspect]
     Indication: TORTICOLLIS
     Dosage: 6 UNK, BID, UNKNOWN
  4. GEODON [Concomitant]
  5. ATIVAN [Concomitant]
  6. VALPROIC ACID [Concomitant]
  7. KLONOPIN [Concomitant]
  8. BACLOFEN [Concomitant]
  9. MIRAPEX [Concomitant]
  10. CHLORAL HYDRATE [Concomitant]

REACTIONS (1)
  - CONFUSIONAL STATE [None]
